FAERS Safety Report 5039981-4 (Version None)
Quarter: 2006Q2

REPORT INFORMATION
  Report Type: 
  Country: None (occurrence: None)
  Receive Date: 20060601
  Receipt Date: 20060116
  Transmission Date: 20061013
  Serious: No
  Sender: FDA-Public Use
  Company Number: 2006PV007163

PATIENT
  Age: 67 Year
  Sex: Female
  Weight: 97.0698 kg

DRUGS (9)
  1. BYETTA [Suspect]
     Indication: DIABETES MELLITUS NON-INSULIN-DEPENDENT
     Dosage: SEE IMAGE
     Route: 058
     Dates: start: 20050928, end: 20051001
  2. BYETTA [Suspect]
     Indication: DIABETES MELLITUS NON-INSULIN-DEPENDENT
     Dosage: SEE IMAGE
     Route: 058
     Dates: start: 20051001
  3. GLIPIZIDE [Concomitant]
  4. METFORMIN [Concomitant]
  5. LANTUS [Concomitant]
  6. HUMALOG [Concomitant]
  7. CORTISONE [Concomitant]
  8. AVELOX [Concomitant]
  9. AZITHROMYCIN [Concomitant]

REACTIONS (3)
  - ANOREXIA [None]
  - DYSPEPSIA [None]
  - WEIGHT DECREASED [None]
